FAERS Safety Report 4418139-3 (Version None)
Quarter: 2004Q3

REPORT INFORMATION
  Report Type: 
  Country: None (occurrence: None)
  Receive Date: 20040805
  Receipt Date: 20040805
  Transmission Date: 20050211
  Serious: Yes (Hospitalization)
  Sender: FDA-Public Use
  Company Number: None

PATIENT
  Sex: Male

DRUGS (2)
  1. INTERFERON ALPHA 2B [Suspect]
     Indication: MALIGNANT MELANOMA
     Dosage: 10 MU/M2 SQ
     Dates: start: 20010812, end: 20010816
  2. PROLEUKIN [Suspect]
     Dosage: 3 MU  SQ
     Dates: start: 20010817, end: 20010914

REACTIONS (1)
  - PERICARDITIS [None]
